FAERS Safety Report 16314107 (Version 1)
Quarter: 2019Q2

REPORT INFORMATION
  Report Type: Spontaneous
  Country: GR (occurrence: GR)
  Receive Date: 20190515
  Receipt Date: 20190515
  Transmission Date: 20190711
  Serious: Yes (Hospitalization, Other)
  Sender: FDA-Public Use
  Company Number: GR-GLAXOSMITHKLINE-GR2019085665

PATIENT
  Age: 18 Year
  Sex: Male
  Weight: 53 kg

DRUGS (3)
  1. AEROLIN [Suspect]
     Active Substance: ALBUTEROL
     Indication: COUGH
  2. AEROLIN [Suspect]
     Active Substance: ALBUTEROL
     Indication: RHINITIS ALLERGIC
     Dosage: 100 ?G, BID
     Route: 055
     Dates: start: 20190417, end: 20190421
  3. MODULAIR [Concomitant]
     Indication: COUGH
     Dosage: 10 MG, QD
     Route: 048
     Dates: start: 20190417

REACTIONS (3)
  - Stress [Recovered/Resolved]
  - Tachycardia [Recovered/Resolved]
  - Irritability [Recovered/Resolved]

NARRATIVE: CASE EVENT DATE: 20190420
